FAERS Safety Report 4706020-1 (Version None)
Quarter: 2005Q2

REPORT INFORMATION
  Report Type: 
  Country: None (occurrence: None)
  Receive Date: 20050627
  Receipt Date: 20040809
  Transmission Date: 20051028
  Serious: Yes (Hospitalization)
  Sender: FDA-Public Use
  Company Number: US-JNJFOC-20040802958

PATIENT
  Age: 70 Year
  Sex: Female

DRUGS (3)
  1. DURAGESIC-100 [Suspect]
     Indication: PAIN
     Dosage: 50 UG/ HR, 1 IN 72 HOUR, TRANSDERMAL;  75 UG/HR, 1 IN 72 HOUR, TRANSDERMAL;  100 UG/HR, 1 IN 72 HOUR
     Route: 062
     Dates: start: 20020801, end: 20030801
  2. DURAGESIC-100 [Suspect]
     Indication: PAIN
     Dosage: 50 UG/ HR, 1 IN 72 HOUR, TRANSDERMAL;  75 UG/HR, 1 IN 72 HOUR, TRANSDERMAL;  100 UG/HR, 1 IN 72 HOUR
     Route: 062
     Dates: start: 20030801, end: 20040401
  3. DURAGESIC-100 [Suspect]
     Indication: PAIN
     Dosage: 50 UG/ HR, 1 IN 72 HOUR, TRANSDERMAL;  75 UG/HR, 1 IN 72 HOUR, TRANSDERMAL;  100 UG/HR, 1 IN 72 HOUR
     Route: 062
     Dates: start: 20040401, end: 20040730

REACTIONS (5)
  - BRADYCARDIA [None]
  - DIFFICULTY IN WALKING [None]
  - FALL [None]
  - MALAISE [None]
  - TREMOR [None]
